FAERS Safety Report 16709870 (Version 1)
Quarter: 2019Q4

REPORT INFORMATION
  Report Type: Spontaneous
  Country: US (occurrence: US)
  Receive Date: 20190815
  Receipt Date: 20190815
  Transmission Date: 20200122
  Serious: Yes (Hospitalization)
  Sender: FDA-Public Use
  Company Number: None

PATIENT
  Age: 58 Year
  Sex: Female

DRUGS (10)
  1. LINZESS CAP 145 MG [Concomitant]
  2. MYCOPHENOLACT TAB 500 MG [Concomitant]
  3. ATORVASTATIN TAB 40 MG [Concomitant]
     Active Substance: ATORVASTATIN
  4. CEPHALEXIN CAP 500 MG [Concomitant]
  5. HUMIRA [Suspect]
     Active Substance: ADALIMUMAB
     Indication: SPINAL OSTEOARTHRITIS
     Dosage: ?          OTHER FREQUENCY:EVERY 7 DAYS;?
     Route: 058
     Dates: start: 20180217
  6. FLUCONAZOLE TAB 150 MG [Concomitant]
  7. OLM MED/HCTZ TAB 20-12.5 [Concomitant]
  8. TRAZODONE TAB 50 MG [Concomitant]
  9. CEVIMELINE CAP 30 MG [Concomitant]
  10. VIXTOZA INJ 18 MG / 3 ML [Concomitant]

REACTIONS (2)
  - Surgery [None]
  - Therapy cessation [None]

NARRATIVE: CASE EVENT DATE: 20190809
